FAERS Safety Report 5115421-1 (Version None)
Quarter: 2006Q3

REPORT INFORMATION
  Report Type: 
  Country: None (occurrence: None)
  Receive Date: 20060921
  Receipt Date: 20060914
  Transmission Date: 20061208
  Serious: Yes (Hospitalization, Other)
  Sender: FDA-Public Use
  Company Number: HQWYE550431JUL06

PATIENT
  Age: 73 Year
  Sex: Male

DRUGS (17)
  1. RAPAMUNE [Suspect]
     Indication: PROPHYLAXIS AGAINST TRANSPLANT REJECTION
     Dosage: SEE IMAGE, ORAL
     Route: 048
     Dates: start: 20030306, end: 20050519
  2. RAPAMUNE [Suspect]
     Indication: PROPHYLAXIS AGAINST TRANSPLANT REJECTION
     Dosage: SEE IMAGE, ORAL
     Route: 048
     Dates: start: 20060520, end: 20060726
  3. RAPAMUNE [Suspect]
     Indication: PROPHYLAXIS AGAINST TRANSPLANT REJECTION
     Dosage: SEE IMAGE, ORAL
     Route: 048
     Dates: start: 20060727, end: 20060727
  4. RAPAMUNE [Suspect]
     Indication: PROPHYLAXIS AGAINST TRANSPLANT REJECTION
     Dosage: SEE IMAGE, ORAL
     Route: 048
     Dates: start: 20060728, end: 20060731
  5. RAPAMUNE [Suspect]
     Indication: PROPHYLAXIS AGAINST TRANSPLANT REJECTION
     Dosage: SEE IMAGE, ORAL
     Route: 048
     Dates: start: 20060801
  6. CELLCEPT [Concomitant]
  7. PREDNISONE TAB [Concomitant]
  8. TRANGOREX (AMIODARONE) [Concomitant]
  9. COZAAR [Concomitant]
  10. BRAINAL (NIMODIPINE) [Concomitant]
  11. SEPTRA [Concomitant]
  12. FUROSEMIDE [Concomitant]
  13. HYDROSALURETIL (HYDROCHLOROTHIAZIDE) [Concomitant]
  14. RANITIDINE [Concomitant]
  15. BOI-K ASPARTICO (ASPARTIC ACID/POTASSIUM ASCORBATE) [Concomitant]
  16. ATORVASTATIN CALCIUM [Concomitant]
  17. EZETROL (EZETIMIBE) [Concomitant]

REACTIONS (5)
  - BLOOD CREATINE INCREASED [None]
  - GASTROENTERITIS VIRAL [None]
  - IMMUNOSUPPRESSANT DRUG LEVEL INCREASED [None]
  - INFECTION IN AN IMMUNOCOMPROMISED HOST [None]
  - PYREXIA [None]
